FAERS Safety Report 4569560-4 (Version None)
Quarter: 2005Q1

REPORT INFORMATION
  Report Type: 
  Country: None (occurrence: None)
  Receive Date: 20050201
  Receipt Date: 20050125
  Transmission Date: 20050727
  Serious: Yes (Life-Threatening, Hospitalization)
  Sender: FDA-Public Use
  Company Number: 2005AC00136

PATIENT
  Age: 70 Year
  Sex: Male

DRUGS (3)
  1. SEROQUEL [Suspect]
     Indication: DELUSION
     Dosage: 100 MG DAILY PO
     Route: 048
     Dates: start: 20040308, end: 20040321
  2. SINEMET [Concomitant]
  3. MIRAPEX [Concomitant]

REACTIONS (4)
  - BRADYKINESIA [None]
  - CHOKING [None]
  - DYSPHAGIA [None]
  - PARKINSONISM [None]
